FAERS Safety Report 8899679 (Version 1)
Quarter: 2012Q4

REPORT INFORMATION
  Report Type: 
  Country: US (occurrence: US)
  Receive Date: 20121108
  Receipt Date: 20121108
  Transmission Date: 20130627
  Serious: No
  Sender: FDA-Public Use
  Company Number: US-AMGEN-USASP2012035623

PATIENT
  Age: 62 Year
  Sex: Female
  Weight: 61.22 kg

DRUGS (9)
  1. ENBREL [Suspect]
     Indication: PSORIASIS
     Dosage: 50 mg, qwk
     Route: 058
     Dates: start: 201205
  2. PROLIA [Concomitant]
  3. METHOTREXATE [Concomitant]
     Dosage: 2.5 mg, UNK
  4. LORATADINE [Concomitant]
  5. FOLIC ACID [Concomitant]
     Dosage: 20 mg, UNK
  6. CELEBREX [Concomitant]
     Dosage: 100 mg, UNK
  7. OMEPRAZOLE [Concomitant]
     Dosage: 10 mg, UNK
  8. VITAMIN D /00107901/ [Concomitant]
  9. MULTIVITAMIN                       /00097801/ [Concomitant]

REACTIONS (2)
  - Dry eye [Unknown]
  - Eye infection [Unknown]
